FAERS Safety Report 4729977-1 (Version None)
Quarter: 2005Q3

REPORT INFORMATION
  Report Type: 
  Country: None (occurrence: None)
  Receive Date: 20050729
  Receipt Date: 20050729
  Transmission Date: 20060218
  Serious: No
  Sender: FDA-Public Use
  Company Number: None

PATIENT
  Age: 60 Year
  Sex: Male
  Weight: 106 kg

DRUGS (1)
  1. QUETIAPINE 200MG ASTRAZENECA [Suspect]
     Dosage: 200MG PO BID
     Route: 048
     Dates: start: 20041022, end: 20050610

REACTIONS (2)
  - SEDATION [None]
  - SOMNOLENCE [None]
